FAERS Safety Report 7359042-9 (Version None)
Quarter: 2011Q1

REPORT INFORMATION
  Report Type: 
  Country: None (occurrence: None)
  Receive Date: 20110317
  Receipt Date: 20110316
  Transmission Date: 20110831
  Serious: Yes (Other)
  Sender: FDA-Public Use
  Company Number: US-PFIZER INC-2011058605

PATIENT
  Sex: Male
  Weight: 88.435 kg

DRUGS (1)
  1. NEURONTIN [Suspect]
     Indication: BIPOLAR DISORDER
     Dosage: 600 MG, 2X/DAY
     Dates: start: 20100401

REACTIONS (2)
  - BLADDER IRRITATION [None]
  - URINARY INCONTINENCE [None]
